FAERS Safety Report 17151410 (Version 18)
Quarter: 2022Q4

REPORT INFORMATION
  Report Type: Report from Study
  Country: JP (occurrence: None)
  Receive Date: 20191213
  Receipt Date: 20221121
  Transmission Date: 20230113
  Serious: Yes (Life-Threatening)
  Sender: FDA-Public Use
  Company Number: JP-ROCHE-2494706

PATIENT
  Age: 68 Year
  Sex: Male
  Weight: 71.2 kg

DRUGS (36)
  1. ATEZOLIZUMAB [Suspect]
     Active Substance: ATEZOLIZUMAB
     Indication: Non-small cell lung cancer
     Dosage: ON DAY 1 OF EACH 21 DAY CYCLE FOR 4 CYCLES?MOST RECENT DOSE PRIOR TO AE/SAE: 25/NOV/2019
     Route: 041
     Dates: start: 20191125
  2. CISPLATIN [Suspect]
     Active Substance: CISPLATIN
     Indication: Non-small cell lung cancer
     Dosage: ON DAY 1 OF EACH 21 DAY CYCLE FOR 4 CYCLES?MOST RECENT DOSE PRIOR TO AE/SAE: 25/NOV/2019 (135 MG)
     Route: 042
     Dates: start: 20191125
  3. PEMETREXED [Suspect]
     Active Substance: PEMETREXED
     Indication: Non-small cell lung cancer
     Dosage: ON DAY 1 OF EACH 21 DAY CYCLE FOR 4 CYCLES?MOST RECENT DOSE PRIOR TO AE/SAE: 25/NOV/2019 (906 MG).
     Route: 042
     Dates: start: 20191125
  4. APREPITANT [Concomitant]
     Active Substance: APREPITANT
     Dates: start: 20191125, end: 20191127
  5. PALONOSETRON HYDROCHLORIDE [Concomitant]
     Active Substance: PALONOSETRON HYDROCHLORIDE
     Dates: start: 20191125, end: 20191125
  6. FAMOTIDINE [Concomitant]
     Active Substance: FAMOTIDINE
     Dates: start: 20191125, end: 20191125
  7. FAMOTIDINE [Concomitant]
     Active Substance: FAMOTIDINE
     Dates: start: 20201110, end: 20201110
  8. MAGNESIUM SULFATE [Concomitant]
     Active Substance: MAGNESIUM SULFATE
     Dosage: CORRECTIVE INJECTION 1MEQ/ML
     Dates: start: 20191125, end: 20191125
  9. METOCLOPRAMIDE [Concomitant]
     Active Substance: METOCLOPRAMIDE
     Indication: Hiccups
     Dates: start: 20191128, end: 20191201
  10. METOCLOPRAMIDE [Concomitant]
     Active Substance: METOCLOPRAMIDE
     Indication: Nausea
  11. METOCLOPRAMIDE [Concomitant]
     Active Substance: METOCLOPRAMIDE
     Indication: Decreased appetite
  12. OLANZAPINE [Concomitant]
     Active Substance: OLANZAPINE
     Indication: Nausea
     Dates: start: 20191129, end: 20191206
  13. DOMPERIDONE [Concomitant]
     Active Substance: DOMPERIDONE
     Indication: Nausea
     Dates: start: 20191202, end: 20191202
  14. ESOMEPRAZOLE MAGNESIUM [Concomitant]
     Active Substance: ESOMEPRAZOLE MAGNESIUM
     Indication: Gastritis
     Dates: start: 20191202, end: 20191206
  15. ACETAMINOPHEN [Concomitant]
     Active Substance: ACETAMINOPHEN
     Indication: Pyrexia
     Dates: start: 20191104, end: 20191206
  16. ACETAMINOPHEN [Concomitant]
     Active Substance: ACETAMINOPHEN
     Dates: start: 20200627, end: 20200628
  17. LACTEC D [Concomitant]
     Indication: Nausea
     Dates: start: 20191130, end: 20191206
  18. LACTEC D [Concomitant]
     Indication: Decreased appetite
  19. PIPERACILLIN SODIUM\TAZOBACTAM SODIUM [Concomitant]
     Active Substance: PIPERACILLIN SODIUM\TAZOBACTAM SODIUM
     Indication: Pyrexia
     Dates: start: 20191205, end: 20191208
  20. ACETAMINOPHEN [Concomitant]
     Active Substance: ACETAMINOPHEN
     Indication: Pyrexia
     Dosage: BAG FOR INTRAVENOUS INJECTION
     Route: 042
     Dates: start: 20191206, end: 20191211
  21. DEXAMETHASONE SODIUM PHOSPHATE [Concomitant]
     Active Substance: DEXAMETHASONE SODIUM PHOSPHATE
     Route: 042
     Dates: start: 20191125, end: 20191125
  22. DEXAMETHASONE [Concomitant]
     Active Substance: DEXAMETHASONE
     Route: 048
     Dates: start: 20191126, end: 20191128
  23. PLATELETS [Concomitant]
     Active Substance: HUMAN PLATELET, ALLOGENIC
     Dosage: DOSE: 10 UNITS
  24. LEVOFLOXACIN [Concomitant]
     Active Substance: LEVOFLOXACIN
     Dates: end: 20191219
  25. LANDIOLOL HYDROCHLORIDE [Concomitant]
     Active Substance: LANDIOLOL HYDROCHLORIDE
     Indication: Atrioventricular block complete
     Dates: start: 20191211, end: 20191216
  26. KCL [Concomitant]
     Active Substance: POTASSIUM CHLORIDE
     Indication: Atrioventricular block complete
     Dates: start: 20191212, end: 20191228
  27. CEFMETAZOLE SODIUM [Concomitant]
     Active Substance: CEFMETAZOLE SODIUM
     Indication: Cholecystitis acute
     Dates: start: 20200627, end: 20200704
  28. VONOPRAZAN FUMARATE [Concomitant]
     Active Substance: VONOPRAZAN FUMARATE
     Dates: start: 20200629
  29. LOXOPROFEN SODIUM DIHYDRATE [Concomitant]
     Active Substance: LOXOPROFEN SODIUM DIHYDRATE
     Indication: Back pain
     Dates: start: 20200813, end: 20200827
  30. LOXOPROFEN SODIUM DIHYDRATE [Concomitant]
     Active Substance: LOXOPROFEN SODIUM DIHYDRATE
     Dates: start: 20201111
  31. MAGNESIUM CITRATE [Concomitant]
     Active Substance: MAGNESIUM CITRATE
     Dates: start: 20201109, end: 20201109
  32. CEFAZOLIN SODIUM [Concomitant]
     Active Substance: CEFAZOLIN SODIUM
     Dates: start: 20201110, end: 20201110
  33. ENOXAPARIN SODIUM [Concomitant]
     Active Substance: ENOXAPARIN SODIUM
     Dates: start: 20201111, end: 20201112
  34. REBAMIPIDE [Concomitant]
     Active Substance: REBAMIPIDE
     Dates: start: 20201111
  35. HYDROXOCOBALAMIN [Concomitant]
     Active Substance: HYDROXOCOBALAMIN
     Dates: start: 20191108, end: 20191108
  36. ZOLPIDEM TARTRATE [Concomitant]
     Active Substance: ZOLPIDEM TARTRATE
     Indication: Insomnia
     Dates: start: 20191203, end: 20191203

REACTIONS (1)
  - Duodenal ulcer haemorrhage [Recovered/Resolved]

NARRATIVE: CASE EVENT DATE: 20191207
